FAERS Safety Report 9288957 (Version 1)
Quarter: 2013Q2

REPORT INFORMATION
  Report Type: Spontaneous
  Country: US (occurrence: US)
  Receive Date: 20130514
  Receipt Date: 20130514
  Transmission Date: 20140414
  Serious: No
  Sender: FDA-Public Use
  Company Number: US-ASTRAZENECA-2013SE31681

PATIENT
  Age: 20 Year
  Sex: Female
  Weight: 59 kg

DRUGS (3)
  1. SEROQUEL [Suspect]
     Indication: BIPOLAR DISORDER
     Route: 048
  2. SEROQUEL [Suspect]
     Indication: BIPOLAR DISORDER
     Route: 048
     Dates: start: 2011, end: 201302
  3. REMERON [Concomitant]

REACTIONS (4)
  - Bipolar disorder [Unknown]
  - Anger [Unknown]
  - Abnormal behaviour [Unknown]
  - Intentional drug misuse [Unknown]
